FAERS Safety Report 9240224 (Version 1)
Quarter: 2013Q2

REPORT INFORMATION
  Report Type: Spontaneous
  Country: GB (occurrence: None)
  Receive Date: 20130417
  Receipt Date: 20130417
  Transmission Date: 20140414
  Serious: Yes (Other)
  Sender: FDA-Public Use
  Company Number: 2013/087

PATIENT
  Age: 75 Year
  Sex: Male

DRUGS (2)
  1. AMLODIPINE [Suspect]
  2. ASPIRIN (NO. PREF. NAME) [Concomitant]

REACTIONS (3)
  - Cerebrovascular accident [None]
  - Cardiac disorder [None]
  - Blood pressure inadequately controlled [None]
